FAERS Safety Report 15057180 (Version 1)
Quarter: 2018Q2

REPORT INFORMATION
  Report Type: Spontaneous
  Country: US (occurrence: US)
  Receive Date: 20180604
  Receipt Date: 20180604
  Transmission Date: 20180711
  Serious: No
  Sender: FDA-Public Use
  Company Number: None

PATIENT
  Age: 44 Year
  Sex: Male

DRUGS (2)
  1. LISINOPRIL. [Concomitant]
     Active Substance: LISINOPRIL
  2. BEXAROTENE CAP 75MG [Suspect]
     Active Substance: BEXAROTENE

REACTIONS (3)
  - Skin lesion [None]
  - Headache [None]
  - Rash [None]

NARRATIVE: CASE EVENT DATE: 20180521
